FAERS Safety Report 9508799 (Version 1)
Quarter: 2013Q3

REPORT INFORMATION
  Report Type: Spontaneous
  Country: US (occurrence: US)
  Receive Date: 20130909
  Receipt Date: 20130909
  Transmission Date: 20140515
  Serious: No
  Sender: FDA-Public Use
  Company Number: US-BRISTOL-MYERS SQUIBB COMPANY-19095587

PATIENT
  Sex: Male
  Weight: 131.52 kg

DRUGS (1)
  1. ABILIFY TABS 30 MG [Suspect]

REACTIONS (1)
  - Glycosylated haemoglobin increased [Unknown]
